FAERS Safety Report 5918387-7 (Version None)
Quarter: 2008Q4

REPORT INFORMATION
  Report Type: 
  Country: None (occurrence: None)
  Receive Date: 20081010
  Receipt Date: 20080930
  Transmission Date: 20090506
  Serious: Yes (Hospitalization)
  Sender: FDA-Public Use
  Company Number: 2008BI023132

PATIENT
  Age: 60 Year
  Sex: Male

DRUGS (3)
  1. AVONEX [Suspect]
     Indication: MULTIPLE SCLEROSIS
     Dosage: IM
     Route: 030
     Dates: start: 20041029
  2. . [Concomitant]
  3. . [Concomitant]

REACTIONS (3)
  - BENIGN NEOPLASM OF BLADDER [None]
  - BLADDER DISORDER [None]
  - PROSTATOMEGALY [None]
